FAERS Safety Report 7527637-5 (Version None)
Quarter: 2011Q2

REPORT INFORMATION
  Report Type: 
  Country: None (occurrence: None)
  Receive Date: 20110607
  Receipt Date: 20110524
  Transmission Date: 20111010
  Serious: Yes (Death, Hospitalization, Other)
  Sender: FDA-Public Use
  Company Number: PT-RANBAXY-2011RR-44820

PATIENT
  Age: 17 Year
  Sex: Male

DRUGS (5)
  1. PREDNISOLONE [Suspect]
     Indication: PROPHYLAXIS AGAINST GRAFT VERSUS HOST DISEASE
     Dosage: 1 MG/KG, BID
     Route: 048
  2. FLUCONAZOLE [Suspect]
     Indication: ANTIFUNGAL PROPHYLAXIS
     Dosage: 400 MG, UNK
  3. TACROLIMUS [Suspect]
     Indication: GRAFT VERSUS HOST DISEASE
  4. TACROLIMUS [Suspect]
     Indication: PROPHYLAXIS AGAINST GRAFT VERSUS HOST DISEASE
  5. METHOTREXATE [Suspect]
     Indication: PROPHYLAXIS AGAINST GRAFT VERSUS HOST DISEASE

REACTIONS (17)
  - LEUKOPENIA [None]
  - CONDITION AGGRAVATED [None]
  - EXOPHTHALMOS [None]
  - AMAUROSIS [None]
  - SINUSITIS [None]
  - ENCEPHALITIS FUNGAL [None]
  - RESPIRATORY FAILURE [None]
  - DYSARTHRIA [None]
  - PNEUMONITIS [None]
  - PYREXIA [None]
  - HEMIPARESIS [None]
  - FEBRILE NEUTROPENIA [None]
  - HAEMOPTYSIS [None]
  - PERIORBITAL OEDEMA [None]
  - RENAL FAILURE ACUTE [None]
  - DISEASE PROGRESSION [None]
  - HEADACHE [None]
